FAERS Safety Report 9825545 (Version 1)
Quarter: 2014Q1

REPORT INFORMATION
  Report Type: Spontaneous
  Country: US (occurrence: None)
  Receive Date: 20140115
  Receipt Date: 20140115
  Transmission Date: 20141002
  Serious: No
  Sender: FDA-Public Use
  Company Number: None

PATIENT
  Age: 67 Year
  Sex: Male

DRUGS (1)
  1. CIPRO [Suspect]
     Indication: CYSTOSCOPY
     Route: 042

REACTIONS (3)
  - Infusion site pruritus [None]
  - Infusion site erythema [None]
  - Infusion site warmth [None]
